FAERS Safety Report 10058092 (Version 1)
Quarter: 2014Q2

REPORT INFORMATION
  Report Type: Spontaneous
  Country: US (occurrence: US)
  Receive Date: 20140404
  Receipt Date: 20140404
  Transmission Date: 20141212
  Serious: No
  Sender: FDA-Public Use
  Company Number: US-PFIZER INC-2014091797

PATIENT
  Sex: Female

DRUGS (2)
  1. LEVOXYL [Suspect]
     Dosage: MORE THAN 75 UG
  2. LEVOXYL [Suspect]
     Dosage: 75 UG, UNK

REACTIONS (4)
  - Tachycardia [Unknown]
  - Fatigue [Unknown]
  - Nervousness [Unknown]
  - Condition aggravated [Unknown]
